FAERS Safety Report 7822825-2 (Version None)
Quarter: 2011Q4

REPORT INFORMATION
  Report Type: 
  Country: None (occurrence: None)
  Receive Date: 20111018
  Receipt Date: 20110812
  Transmission Date: 20120403
  Serious: No
  Sender: FDA-Public Use
  Company Number: US-ASTRAZENECA-2011SE17748

PATIENT
  Age: 62 Year
  Sex: Female

DRUGS (1)
  1. SYMBICORT [Suspect]
     Indication: ASTHMA
     Dosage: 160/4.5 BCG BID
     Route: 055

REACTIONS (6)
  - MALAISE [None]
  - HYPERTENSION [None]
  - PULMONARY HYPERTENSION [None]
  - HEART RATE INCREASED [None]
  - ASTHMA [None]
  - DRUG INEFFECTIVE [None]
